FAERS Safety Report 15081300 (Version 2)
Quarter: 2018Q3

REPORT INFORMATION
  Report Type: Spontaneous
  Country: IT (occurrence: IT)
  Receive Date: 20180628
  Receipt Date: 20180911
  Transmission Date: 20181010
  Serious: Yes (Other)
  Sender: FDA-Public Use
  Company Number: IT-SUN PHARMACEUTICAL INDUSTRIES LTD-2018R1-172467

PATIENT
  Age: 20 Year
  Sex: Female

DRUGS (6)
  1. TIROSINT 25 MICROGRAMMI/1 ML SOLUZIONE ORALE [Concomitant]
     Indication: THYROIDITIS CHRONIC
     Dosage: 1 DF, UNK
     Route: 048
     Dates: start: 20171220
  2. OMEPRAZOLE. [Concomitant]
     Active Substance: OMEPRAZOLE
     Indication: PRODUCT USED FOR UNKNOWN INDICATION
     Dosage: 20 MG, UNK
     Route: 048
     Dates: start: 20180301, end: 20180308
  3. LEVOFLOXACIN HEMIHYDRATE [Suspect]
     Active Substance: LEVOFLOXACIN
     Indication: HELICOBACTER INFECTION
     Dosage: 500 MG, DAILY
     Route: 048
     Dates: start: 20180301, end: 20180308
  4. CLARITHROMYCIN. [Suspect]
     Active Substance: CLARITHROMYCIN
     Indication: HELICOBACTER INFECTION
     Dosage: 1 G, DAILY
     Route: 048
     Dates: start: 20180301, end: 20180308
  5. DIBASE 25.000 U.I./2,5 ML SOLUZIONE ORALE [Concomitant]
     Indication: PRODUCT USED FOR UNKNOWN INDICATION
     Dosage: 1 DF, UNK
     Route: 048
     Dates: start: 20170220
  6. AMOXICILLIN. [Suspect]
     Active Substance: AMOXICILLIN
     Indication: HELICOBACTER INFECTION
     Dosage: 2 G, DAILY
     Route: 048
     Dates: start: 20180301, end: 20180308

REACTIONS (7)
  - Malaise [Recovered/Resolved]
  - Dysphagia [Recovered/Resolved]
  - Cough [Recovered/Resolved]
  - Odynophagia [Recovered/Resolved]
  - Mucosal dryness [Recovered/Resolved]
  - Abdominal pain upper [Recovered/Resolved]
  - Macroglossia [Recovered/Resolved]

NARRATIVE: CASE EVENT DATE: 20180306
